FAERS Safety Report 7112631-9 (Version None)
Quarter: 2010Q4

REPORT INFORMATION
  Report Type: 
  Country: None (occurrence: None)
  Receive Date: 20101119
  Receipt Date: 20101104
  Transmission Date: 20110411
  Serious: Yes (Hospitalization)
  Sender: FDA-Public Use
  Company Number: GXKR2010ES11764

PATIENT
  Age: 65 Year
  Sex: Female

DRUGS (4)
  1. LEVETIRACETAM [Suspect]
     Dosage: 250 MG, Q8H
     Route: 048
  2. ENALAPRIL MALEATE [Concomitant]
     Route: 065
  3. CLONAZEPAM [Concomitant]
     Route: 065
  4. SERTRALINE HYDROCHLORIDE [Concomitant]
     Route: 065

REACTIONS (7)
  - CONFUSIONAL STATE [None]
  - DEPRESSED LEVEL OF CONSCIOUSNESS [None]
  - DISORIENTATION [None]
  - FALL [None]
  - FLUID INTAKE RESTRICTION [None]
  - HYPONATRAEMIA [None]
  - SENSORY LOSS [None]
